FAERS Safety Report 22048130 (Version 1)
Quarter: 2023Q1

REPORT INFORMATION
  Report Type: Report from Study
  Country: US (occurrence: US)
  Receive Date: 20230301
  Receipt Date: 20230301
  Transmission Date: 20230417
  Serious: Yes (Other)
  Sender: FDA-Public Use
  Company Number: US-SA-SAC20230228000966

PATIENT
  Sex: Female

DRUGS (3)
  1. ELOCTATE [Suspect]
     Active Substance: EFMOROCTOCOG ALFA
     Indication: Factor VIII deficiency
     Dosage: UNK, PRN (ON DEMAND, PROPHLACTICALLY PREVIOUSLY)
  2. ELOCTATE [Suspect]
     Active Substance: EFMOROCTOCOG ALFA
     Indication: Factor VIII deficiency
     Dosage: UNK, PRN (ON DEMAND, PROPHLACTICALLY PREVIOUSLY)
  3. UNSPECIFIED INGREDIENT [Suspect]
     Active Substance: UNSPECIFIED INGREDIENT
     Dosage: UNK

REACTIONS (9)
  - Haemorrhage [Unknown]
  - Condition aggravated [Unknown]
  - Haematochezia [Unknown]
  - Aversion [Unknown]
  - Poor venous access [Unknown]
  - Vomiting [Unknown]
  - Neck pain [Unknown]
  - Somnolence [Unknown]
  - Treatment noncompliance [Unknown]
